FAERS Safety Report 8599666-4 (Version None)
Quarter: 2012Q3

REPORT INFORMATION
  Report Type: 
  Country: None (occurrence: None)
  Receive Date: 20120802
  Receipt Date: 20120719
  Transmission Date: 20120928
  Serious: Yes (Life-Threatening, Hospitalization)
  Sender: FDA-Public Use
  Company Number: FK201202098

PATIENT
  Age: 43 Year
  Sex: Male
  Weight: 81.2 kg

DRUGS (3)
  1. OXALIPLATIN [Suspect]
     Indication: COLON CANCER
     Dosage: INFUSION 11:00-11:03 UHR
     Dates: start: 20120703
  2. FLUOROURACIL [Concomitant]
  3. FOLINSAEURE (FOLINIC ACID) [Concomitant]

REACTIONS (2)
  - SHOCK [None]
  - ANAPHYLACTIC REACTION [None]
